FAERS Safety Report 4381796-4 (Version None)
Quarter: 2004Q2

REPORT INFORMATION
  Report Type: 
  Country: None (occurrence: None)
  Receive Date: 20040603
  Receipt Date: 20030605
  Transmission Date: 20050107
  Serious: Yes (Hospitalization)
  Sender: FDA-Public Use
  Company Number: 200315335US

PATIENT
  Age: 72 Year
  Sex: Female
  Weight: 60 kg

DRUGS (3)
  1. LOVENOX [Suspect]
     Indication: DEEP VEIN THROMBOSIS
     Dosage: 40 MG Q12H SC
     Dates: start: 20030603, end: 20030604
  2. LOVENOX [Suspect]
     Indication: DEEP VEIN THROMBOSIS
     Dosage: 50 MG Q12H SC
     Dates: start: 20030604, end: 20030606
  3. WARFARIN SODIUM [Concomitant]

REACTIONS (1)
  - HAEMORRHAGE [None]
